FAERS Safety Report 8352779 (Version 2)
Quarter: 2012Q4

REPORT INFORMATION
  Report Type: 
  Country: US (occurrence: US)
  Receive Date: 20120124
  Receipt Date: 20120927
  Transmission Date: 20130627
  Serious: No
  Sender: FDA-Public Use
  Company Number: US-AMGEN-USASP2011057294

PATIENT
  Age: 77 Year
  Sex: Female

DRUGS (7)
  1. PROLIA [Suspect]
     Indication: OSTEOPOROSIS POSTMENOPAUSAL
     Dosage: 60 mg, q6mo
     Dates: start: 20110906
  2. VITAMIN D [Concomitant]
     Dosage: 1 IU, qd
  3. ASPIRIN [Concomitant]
     Dosage: 1 mg, qd
  4. CALCIUM [Concomitant]
     Dosage: UNK UNK, qd
  5. VITAMIN E [Concomitant]
  6. OSTEO BI-FLEX [Concomitant]
     Dosage: UNK UNK, qd
  7. MULTIVITAMIN [Concomitant]
     Dosage: UNK UNK, qd

REACTIONS (2)
  - Alopecia [Recovered/Resolved]
  - Pruritus [Not Recovered/Not Resolved]
